FAERS Safety Report 8371283-0 (Version None)
Quarter: 2012Q2

REPORT INFORMATION
  Report Type: 
  Country: None (occurrence: None)
  Receive Date: 20120518
  Receipt Date: 20120509
  Transmission Date: 20120825
  Serious: Yes (Other)
  Sender: FDA-Public Use
  Company Number: CA-JNJFOC-20120510493

PATIENT
  Sex: Female
  Weight: 68.8 kg

DRUGS (3)
  1. REMICADE [Suspect]
     Dosage: 9TH INFUSION
     Dates: start: 20120314
  2. REMICADE [Suspect]
     Indication: COLITIS ULCERATIVE
     Dates: start: 20110207
  3. ALESSE [Concomitant]

REACTIONS (1)
  - CERVIX CARCINOMA [None]
